FAERS Safety Report 4681415-3 (Version None)
Quarter: 2005Q2

REPORT INFORMATION
  Report Type: 
  Country: None (occurrence: None)
  Receive Date: 20050601
  Receipt Date: 20050517
  Transmission Date: 20051028
  Serious: Yes (Hospitalization)
  Sender: FDA-Public Use
  Company Number: USA050496658

PATIENT
  Age: 45 Year
  Sex: Female

DRUGS (4)
  1. CYMBALTA [Suspect]
     Indication: DEPRESSION
     Dosage: 60 MG
     Dates: start: 20050330
  2. XANAX [Concomitant]
  3. METHADONE /00068901/ [Concomitant]
  4. ACTONEL [Concomitant]

REACTIONS (3)
  - AGGRESSION [None]
  - FEAR [None]
  - PSYCHOTIC DISORDER [None]
